FAERS Safety Report 8828572 (Version 1)
Quarter: 2012Q4

REPORT INFORMATION
  Report Type: Report from Study
  Country: US (occurrence: US)
  Receive Date: 20121005
  Receipt Date: 20121005
  Transmission Date: 20130627
  Serious: Yes (Hospitalization)
  Sender: FDA-Public Use
  Company Number: US-ROCHE-1137947

PATIENT
  Age: 56 Year
  Sex: Female

DRUGS (12)
  1. PEGASYS [Suspect]
     Indication: HEPATITIS C
     Route: 058
     Dates: start: 20120405, end: 20120607
  2. COPEGUS [Suspect]
     Indication: HEPATITIS C
     Route: 048
     Dates: start: 20120405, end: 20120607
  3. DACLATASVIR [Suspect]
     Indication: HEPATITIS C
     Route: 048
     Dates: start: 20120405, end: 20120613
  4. ASPIRIN [Concomitant]
     Route: 065
     Dates: start: 2011
  5. BIOTIN [Concomitant]
     Route: 065
     Dates: start: 2009
  6. WELLBUTRIN [Concomitant]
     Route: 065
     Dates: start: 2010
  7. PREMARIN [Concomitant]
     Route: 065
     Dates: start: 2011
  8. SENNA [Concomitant]
     Route: 065
     Dates: start: 2004
  9. SYNTHROID [Concomitant]
     Route: 065
     Dates: start: 2010
  10. TRAZODONE HCL [Concomitant]
     Route: 065
     Dates: start: 2010
  11. VITAMIN C [Concomitant]
     Route: 065
     Dates: start: 2011
  12. FISH OIL [Concomitant]

REACTIONS (1)
  - Bile duct stone [Recovered/Resolved]
